FAERS Safety Report 9350067 (Version 2)
Quarter: 2013Q2

REPORT INFORMATION
  Report Type: Spontaneous
  Country: JP (occurrence: JP)
  Receive Date: 20130615
  Receipt Date: 20130620
  Transmission Date: 20140414
  Serious: Yes (Life-Threatening, Hospitalization, Other)
  Sender: FDA-Public Use
  Company Number: JP-009507513-1011USA03762

PATIENT
  Age: 31 Year
  Sex: Male
  Weight: 75 kg

DRUGS (3)
  1. PREMINENT TABLETS [Suspect]
     Indication: ESSENTIAL HYPERTENSION
     Dosage: 1 DF, QD (50MG LOSARTAN AND 12.5MG HYDROCLOROTHIAZIDE
     Route: 048
     Dates: start: 20090523, end: 20100907
  2. SELARA [Concomitant]
     Indication: HYPERTENSION
     Dosage: 50 MG, QD
     Route: 048
     Dates: start: 20100904
  3. CARDENALIN [Concomitant]
     Indication: ESSENTIAL HYPERTENSION
     Dosage: 1 MG, QD
     Route: 048
     Dates: start: 201004

REACTIONS (4)
  - Heat stroke [Recovered/Resolved]
  - Hyponatraemia [Recovered/Resolved]
  - Endotracheal intubation [Recovered/Resolved]
  - Altered state of consciousness [Recovered/Resolved]
